FAERS Safety Report 4830537-2 (Version None)
Quarter: 2005Q4

REPORT INFORMATION
  Report Type: 
  Country: None (occurrence: None)
  Receive Date: 20051115
  Receipt Date: 20051102
  Transmission Date: 20060501
  Serious: Yes (Hospitalization)
  Sender: FDA-Public Use
  Company Number: 2005AD000111

PATIENT
  Age: 27 Year
  Sex: Male

DRUGS (3)
  1. CEPHALEXIN [Suspect]
     Dosage: 11 DF; X1; PO
     Route: 048
  2. SERTRALINE (SERTRALINE) (50 MG) [Suspect]
     Dosage: 20 DF; X1; PO ; SEE IMAGE
     Route: 048
  3. VENLAFAXINE HCL [Suspect]
     Dosage: 25 MG; TID; PO; SEE IMAGE
     Route: 048

REACTIONS (7)
  - GASTRITIS [None]
  - HEPATITIS [None]
  - HEPATOCELLULAR DAMAGE [None]
  - HEPATOMEGALY [None]
  - MULTIPLE DRUG OVERDOSE [None]
  - OESOPHAGITIS [None]
  - SUICIDE ATTEMPT [None]
